FAERS Safety Report 21435056 (Version 1)
Quarter: 2022Q4

REPORT INFORMATION
  Report Type: Spontaneous
  Country: US (occurrence: US)
  Receive Date: 20221010
  Receipt Date: 20221010
  Transmission Date: 20230112
  Serious: Yes (Disabling)
  Sender: FDA-Public Use
  Company Number: US-MICRO LABS LIMITED-ML2022-04975

PATIENT
  Age: 8 Decade
  Sex: Male

DRUGS (10)
  1. ACETAZOLAMIDE [Suspect]
     Active Substance: ACETAZOLAMIDE
     Indication: Glaucoma
     Route: 048
  2. ACETAZOLAMIDE [Suspect]
     Active Substance: ACETAZOLAMIDE
     Indication: Diabetic nephropathy
  3. DORZOLAMIDE [Suspect]
     Active Substance: DORZOLAMIDE
     Indication: Glaucoma
  4. DORZOLAMIDE [Suspect]
     Active Substance: DORZOLAMIDE
     Indication: Diabetic nephropathy
  5. TIMOLOL [Suspect]
     Active Substance: TIMOLOL
     Indication: Glaucoma
  6. TIMOLOL [Suspect]
     Active Substance: TIMOLOL
     Indication: Diabetic nephropathy
  7. BRIMONIDINE TARTRATE [Suspect]
     Active Substance: BRIMONIDINE TARTRATE
     Indication: Glaucoma
  8. BRIMONIDINE TARTRATE [Suspect]
     Active Substance: BRIMONIDINE TARTRATE
     Indication: Diabetic nephropathy
  9. BEVACIZUMAB [Suspect]
     Active Substance: BEVACIZUMAB
     Indication: Iris neovascularisation
     Dosage: INTRAVITREAL
  10. BEVACIZUMAB [Suspect]
     Active Substance: BEVACIZUMAB
     Indication: Diabetic nephropathy

REACTIONS (1)
  - Drug ineffective [Unknown]
